FAERS Safety Report 4478738-X (Version None)
Quarter: 2004Q4

REPORT INFORMATION
  Report Type: 
  Country: None (occurrence: None)
  Receive Date: 20040923
  Receipt Date: 20040520
  Transmission Date: 20050328
  Serious: No
  Sender: FDA-Public Use
  Company Number: USA040465917

PATIENT
  Age: 57 Year
  Sex: Female

DRUGS (4)
  1. FORTEO [Suspect]
     Indication: OSTEOPOROSIS
     Dosage: 20 UG DAY
     Dates: start: 20040220
  2. ESTRACE [Concomitant]
  3. ALEVE [Concomitant]
  4. NEXIUM [Concomitant]

REACTIONS (1)
  - INJECTION SITE PAIN [None]
